APPROVED DRUG PRODUCT: XALKORI
Active Ingredient: CRIZOTINIB
Strength: 200MG
Dosage Form/Route: CAPSULE;ORAL
Application: N202570 | Product #001
Applicant: PF PRISM CV
Approved: Aug 26, 2011 | RLD: Yes | RS: No | Type: RX

PATENTS:
Patent 7825137 | Expires: May 12, 2027
Patent 7825137 | Expires: May 12, 2027
Patent 7825137 | Expires: May 12, 2027
Patent 8217057 | Expires: Nov 6, 2029
Patent 7858643 | Expires: Oct 8, 2029

EXCLUSIVITY:
Code: ODE-328 | Date: Jan 14, 2028
Code: ODE-407 | Date: Jul 14, 2029